FAERS Safety Report 22093193 (Version 2)
Quarter: 2023Q2

REPORT INFORMATION
  Report Type: Report from Study
  Country: US (occurrence: None)
  Receive Date: 20230314
  Receipt Date: 20230412
  Transmission Date: 20230721
  Serious: Yes (Hospitalization)
  Sender: FDA-Public Use
  Company Number: US-ROCHE-3302988

PATIENT
  Age: 64 Year
  Sex: Female
  Weight: 83.6 kg

DRUGS (6)
  1. IBRUTINIB [Suspect]
     Active Substance: IBRUTINIB
     Indication: Chronic lymphocytic leukaemia
     Dosage: START DATE OF COURSE ASSOCIATED WITH EXPEDITED REPORT : 22/DEC/2022?LAST ADMINISTERED DATE: 31/JAN/2
     Route: 048
     Dates: start: 20210413
  2. OBINUTUZUMAB [Suspect]
     Active Substance: OBINUTUZUMAB
     Indication: Chronic lymphocytic leukaemia
     Dosage: DAY 1, CYCLE 1, START DATE OF COURSE ASSOCIATED WITH EXPEDITED REPORT : 22/DEC/2022?LAST ADMINISTERE
     Route: 042
     Dates: start: 20210413
  3. OBINUTUZUMAB [Suspect]
     Active Substance: OBINUTUZUMAB
     Dosage: DAY 2, CYCLE 1,START DATE OF COURSE ASSOCIATED WITH EXPEDITED REPORT : 22/DEC/2022?LAST ADMINISTERED
     Route: 042
     Dates: start: 20210413
  4. OBINUTUZUMAB [Suspect]
     Active Substance: OBINUTUZUMAB
     Dosage: DAY 8, CYCLE 1,START DATE OF COURSE ASSOCIATED WITH EXPEDITED REPORT : 22/DEC/2022?LAST ADMINISTERED
     Route: 042
     Dates: start: 20210413
  5. OBINUTUZUMAB [Suspect]
     Active Substance: OBINUTUZUMAB
     Dosage: DAY 15, CYCLE 1, START DATE OF COURSE ASSOCIATED WITH EXPEDITED REPORT : 22/DEC/2022?LAST ADMINISTER
     Route: 042
     Dates: start: 20210413
  6. OBINUTUZUMAB [Suspect]
     Active Substance: OBINUTUZUMAB
     Dosage: DAY 1, CYCLE 2-6, START DATE OF COURSE ASSOCIATED WITH EXPEDITED REPORT : 22/DEC/2022?LAST ADMINISTE
     Route: 042
     Dates: start: 20210413

REACTIONS (2)
  - Osteomyelitis [Recovering/Resolving]
  - COVID-19 [Recovering/Resolving]

NARRATIVE: CASE EVENT DATE: 20230130
